FAERS Safety Report 20512260 (Version 1)
Quarter: 2022Q1

REPORT INFORMATION
  Report Type: Spontaneous
  Country: US (occurrence: US)
  Receive Date: 20220224
  Receipt Date: 20220224
  Transmission Date: 20220423
  Serious: Yes (Hospitalization)
  Sender: FDA-Public Use
  Company Number: US-FRESENIUS KABI-FK202201953

PATIENT
  Age: 62 Year
  Sex: Male
  Weight: 76 kg

DRUGS (6)
  1. FLUDARABINE [Suspect]
     Active Substance: FLUDARABINE PHOSPHATE
     Indication: Nodal marginal zone B-cell lymphoma
     Dosage: 45 MG X 1 X 1 DAYS
     Route: 042
     Dates: start: 20220119, end: 20220119
  2. FLUDARABINE [Suspect]
     Active Substance: FLUDARABINE PHOSPHATE
     Dosage: 45 MG X 1 X 1 DAYS
     Route: 042
     Dates: start: 20220120, end: 20220120
  3. LISOCABTAGENE MARALEUCEL [Suspect]
     Active Substance: LISOCABTAGENE MARALEUCEL
     Indication: Nodal marginal zone B-cell lymphoma
     Dosage: JCAR017 (LISOCABTAGENE MARALEUCEL) 100 X 10^6 CAR+ T CELLS X ONCE
     Route: 042
     Dates: start: 20220125, end: 20220125
  4. CYCLOPHOSPHAMIDE [Suspect]
     Active Substance: CYCLOPHOSPHAMIDE
     Indication: Nodal marginal zone B-cell lymphoma
     Dosage: 550 MG X 1 X 1 DAYS
     Route: 042
     Dates: start: 20220119, end: 20220119
  5. CYCLOPHOSPHAMIDE [Suspect]
     Active Substance: CYCLOPHOSPHAMIDE
     Dosage: 550 MG X 1 X 1 DAYS
     Route: 042
     Dates: start: 20220120, end: 20220120
  6. CYCLOPHOSPHAMIDE [Suspect]
     Active Substance: CYCLOPHOSPHAMIDE
     Dosage: 550 MG X 1 X 1 DAYS
     Route: 042
     Dates: start: 20220121, end: 20220121

REACTIONS (1)
  - Pleural effusion [Not Recovered/Not Resolved]

NARRATIVE: CASE EVENT DATE: 20220209
